FAERS Safety Report 13738570 (Version 1)
Quarter: 2017Q3

REPORT INFORMATION
  Report Type: Report from Study
  Country: US (occurrence: US)
  Receive Date: 20170710
  Receipt Date: 20170710
  Transmission Date: 20171127
  Serious: No
  Sender: FDA-Public Use
  Company Number: US-SAOL THERAPEUTICS-2016SAO00377

PATIENT
  Sex: Male

DRUGS (4)
  1. DILAUDID [Suspect]
     Active Substance: HYDROMORPHONE HYDROCHLORIDE
     Dosage: 8.26 MG, \DAY
     Route: 037
  2. BUPIVACAINE. [Suspect]
     Active Substance: BUPIVACAINE
  3. LIORESAL [Suspect]
     Active Substance: BACLOFEN
     Indication: SPINAL PAIN
     Dosage: 41.3 ?G, \DAY
     Route: 037
  4. FENTANYL. [Suspect]
     Active Substance: FENTANYL

REACTIONS (4)
  - Therapeutic response decreased [Recovered/Resolved]
  - Pain [Recovered/Resolved]
  - Hyperhidrosis [Recovered/Resolved]
  - Off label use [Unknown]
